FAERS Safety Report 5425122-8 (Version None)
Quarter: 2007Q3

REPORT INFORMATION
  Report Type: 
  Country: None (occurrence: None)
  Receive Date: 20070824
  Receipt Date: 20070821
  Transmission Date: 20080115
  Serious: Yes (Life-Threatening, Hospitalization)
  Sender: FDA-Public Use
  Company Number: RU-JNJFOC-20070804473

PATIENT
  Sex: Female

DRUGS (4)
  1. HALOPERIDOL DECANOATE [Suspect]
     Indication: DRUG USE FOR UNKNOWN INDICATION
  2. HALOPERIDOL DECANOATE [Suspect]
  3. CLOZAPINE [Suspect]
     Indication: DRUG USE FOR UNKNOWN INDICATION
  4. BROMDEHYDROBENZODIAZEPINE [Concomitant]
     Indication: DRUG USE FOR UNKNOWN INDICATION

REACTIONS (2)
  - NEUROLEPTIC MALIGNANT SYNDROME [None]
  - SUICIDE ATTEMPT [None]
